FAERS Safety Report 15033071 (Version 1)
Quarter: 2018Q3

REPORT INFORMATION
  Report Type: Spontaneous
  Country: US (occurrence: US)
  Receive Date: 20180619
  Receipt Date: 20180619
  Transmission Date: 20181010
  Serious: No
  Sender: FDA-Public Use
  Company Number: US-AVADEL SPECIALTY PHARMACEUTICALS, LLC-2018AVA00044

PATIENT
  Age: 92 Year
  Sex: Male
  Weight: 74.38 kg

DRUGS (7)
  1. NOCTIVA [Suspect]
     Active Substance: DESMOPRESSIN ACETATE
     Indication: NOCTURIA
     Dosage: 0.83 ?G, 1X/DAY 30 MINUTES BEFORE BED
     Route: 045
     Dates: start: 20180420, end: 2018
  2. FISH OIL [Concomitant]
     Active Substance: FISH OIL
  3. MULTIVITAMIN [Concomitant]
     Active Substance: VITAMINS
  4. NOCTIVA [Suspect]
     Active Substance: DESMOPRESSIN ACETATE
     Dosage: 0.83 ?G, 1X/DAY 30 MINUTES BEFORE BED
     Route: 045
     Dates: start: 2018
  5. UNSPECIFIED BLOOD PRESSURE PILLS [Concomitant]
  6. BABY ASPIRIN [Concomitant]
     Active Substance: ASPIRIN
     Dosage: UNK UNK, 1X/DAY
  7. UNSPECIFIED CHOLESTEROL PILL [Concomitant]

REACTIONS (6)
  - Middle insomnia [None]
  - Intentional dose omission [None]
  - Urinary retention [Recovered/Resolved]
  - Dysuria [Recovered/Resolved]
  - Drug effect incomplete [Not Recovered/Not Resolved]
  - Somnolence [Not Recovered/Not Resolved]

NARRATIVE: CASE EVENT DATE: 201804
